FAERS Safety Report 16558015 (Version 3)
Quarter: 2019Q3

REPORT INFORMATION
  Report Type: Spontaneous
  Country: FR (occurrence: FR)
  Receive Date: 20190711
  Receipt Date: 20190827
  Transmission Date: 20191004
  Serious: Yes (Disabling)
  Sender: FDA-Public Use
  Company Number: FR-TEVA-2019-FR-1074560

PATIENT
  Age: 61 Year
  Sex: Female

DRUGS (4)
  1. COTRIMOXAZOLE [Suspect]
     Active Substance: SULFAMETHOXAZOLE\TRIMETHOPRIM
     Indication: CYSTITIS
     Dosage: 2 DOSAGE FORMS DAILY; SULFAMETHOXAZOLE/TRIMETHOPRIM 800 MG/160 MG; 1 DF IN THE MORNING AND 1 DF IN T
     Route: 048
     Dates: start: 20190625, end: 20190702
  2. RANITIDINE. [Concomitant]
     Active Substance: RANITIDINE
     Indication: HAEMORRHAGE PROPHYLAXIS
  3. NEBIVOLOL. [Concomitant]
     Active Substance: NEBIVOLOL
     Indication: HYPERTENSION
  4. IRBESARTAN/HYDROCHLOROTHIAZIDE [Concomitant]
     Active Substance: HYDROCHLOROTHIAZIDE\IRBESARTAN
     Indication: HYPERTENSION

REACTIONS (6)
  - Visual impairment [Recovering/Resolving]
  - Visual acuity reduced [Recovering/Resolving]
  - Impaired driving ability [Recovering/Resolving]
  - Vision blurred [Recovering/Resolving]
  - Therapy cessation [Unknown]
  - Visual impairment [Recovering/Resolving]

NARRATIVE: CASE EVENT DATE: 201906
